FAERS Safety Report 5203554-0 (Version None)
Quarter: 2007Q1

REPORT INFORMATION
  Report Type: 
  Country: None (occurrence: None)
  Receive Date: 20070110
  Receipt Date: 20070109
  Transmission Date: 20070707
  Serious: Yes (Hospitalization)
  Sender: FDA-Public Use
  Company Number: US-GLAXOSMITHKLINE-A0634803A

PATIENT
  Age: 17 Year
  Sex: Female

DRUGS (1)
  1. WELLBUTRIN [Suspect]
     Indication: DEPRESSION
     Route: 065

REACTIONS (6)
  - ARTHRALGIA [None]
  - JOINT SWELLING [None]
  - PAIN [None]
  - PRURITUS [None]
  - RASH [None]
  - URTICARIA [None]
